FAERS Safety Report 6604955-6 (Version None)
Quarter: 2010Q1

REPORT INFORMATION
  Report Type: 
  Country: None (occurrence: None)
  Receive Date: 20100226
  Receipt Date: 20100216
  Transmission Date: 20100710
  Serious: Yes (Hospitalization)
  Sender: FDA-Public Use
  Company Number: JP-ABBOTT-09P-087-0582056-00

PATIENT
  Sex: Male
  Weight: 53 kg

DRUGS (8)
  1. HUMIRA [Suspect]
     Indication: JUVENILE ARTHRITIS
     Route: 058
     Dates: start: 20080912, end: 20090619
  2. HUMIRA [Suspect]
     Route: 058
     Dates: start: 20090717
  3. METHOTREXATE [Concomitant]
     Indication: JUVENILE ARTHRITIS
     Route: 048
     Dates: start: 20070302
  4. IBRUPROFEN [Concomitant]
     Indication: JUVENILE ARTHRITIS
     Route: 048
     Dates: start: 20090427
  5. IBRUPROFEN [Concomitant]
     Route: 048
     Dates: start: 20090428, end: 20090911
  6. FOLIAMIN [Concomitant]
     Indication: FOLATE DEFICIENCY
     Route: 048
     Dates: start: 20080101
  7. FOLIAMIN [Concomitant]
     Indication: PROPHYLAXIS
  8. MOHRUS [Concomitant]
     Indication: JUVENILE ARTHRITIS

REACTIONS (2)
  - PHARYNGITIS [None]
  - STREPTOCOCCAL INFECTION [None]
